FAERS Safety Report 8501100-7 (Version None)
Quarter: 2012Q3

REPORT INFORMATION
  Report Type: 
  Country: None (occurrence: None)
  Receive Date: 20120710
  Receipt Date: 20120625
  Transmission Date: 20120928
  Serious: No
  Sender: FDA-Public Use
  Company Number: US-ASTRAZENECA-2012SE43049

PATIENT
  Age: 74 Year
  Sex: Male
  Weight: 90.7 kg

DRUGS (5)
  1. CRESTOR [Suspect]
     Indication: BLOOD CHOLESTEROL
     Route: 048
  2. ANGINA MEDICATION [Concomitant]
     Indication: ANGINA PECTORIS
  3. PLAVIX [Concomitant]
     Indication: ATRIOVENTRICULAR BLOCK
  4. CRESTOR [Suspect]
     Route: 048
     Dates: start: 20120501
  5. HYPERTENSION MEDICATION [Concomitant]
     Indication: HYPERTENSION

REACTIONS (3)
  - WRONG TECHNIQUE IN DRUG USAGE PROCESS [None]
  - MYALGIA [None]
  - BLOOD TRIGLYCERIDES INCREASED [None]
